FAERS Safety Report 16821457 (Version 1)
Quarter: 2019Q4

REPORT INFORMATION
  Report Type: Spontaneous
  Country: US (occurrence: US)
  Receive Date: 20190917
  Receipt Date: 20190917
  Transmission Date: 20200122
  Serious: Yes (Hospitalization)
  Sender: FDA-Public Use
  Company Number: None

PATIENT
  Age: 73 Year
  Sex: Female

DRUGS (16)
  1. LEVETIRACETAM. [Concomitant]
     Active Substance: LEVETIRACETAM
  2. HYDROCODONE [Concomitant]
     Active Substance: HYDROCODONE
  3. LATANOPROST. [Concomitant]
     Active Substance: LATANOPROST
  4. SMZ/TMP [Concomitant]
     Active Substance: SULFAMETHOXAZOLE\TRIMETHOPRIM
  5. GLEOSTINE [Suspect]
     Active Substance: LOMUSTINE
     Dosage: ?          OTHER FREQUENCY:ONCE ON DAY 1;?
     Route: 048
  6. PANTOPRAZOLE [Concomitant]
     Active Substance: PANTOPRAZOLE
  7. LISINOPRIL. [Concomitant]
     Active Substance: LISINOPRIL
  8. GLEOSTINE [Suspect]
     Active Substance: LOMUSTINE
     Indication: BRAIN NEOPLASM MALIGNANT
     Dosage: ?          OTHER FREQUENCY:ONCE ON DAY 1;?
     Route: 048
  9. CEPHALEXIN. [Concomitant]
     Active Substance: CEPHALEXIN
  10. DEXAMETHASONE. [Concomitant]
     Active Substance: DEXAMETHASONE
  11. DORZOLAMIDE [Concomitant]
     Active Substance: DORZOLAMIDE
  12. ALLOPURINOL. [Concomitant]
     Active Substance: ALLOPURINOL
  13. ONDAENSETRON [Concomitant]
  14. METOPROLOL. [Concomitant]
     Active Substance: METOPROLOL
  15. HYDRALAZINE [Concomitant]
     Active Substance: HYDRALAZINE HYDROCHLORIDE
  16. TIMOLOL. [Concomitant]
     Active Substance: TIMOLOL

REACTIONS (3)
  - Asthenia [None]
  - Therapy cessation [None]
  - Gait inability [None]

NARRATIVE: CASE EVENT DATE: 20190914
